FAERS Safety Report 8030161-7 (Version None)
Quarter: 2012Q1

REPORT INFORMATION
  Report Type: 
  Country: None (occurrence: None)
  Receive Date: 20120106
  Receipt Date: 20120106
  Transmission Date: 20120608
  Serious: Yes (Life-Threatening, Other)
  Sender: FDA-Public Use
  Company Number: None

PATIENT
  Age: 16 Year
  Sex: Male
  Weight: 55.3388 kg

DRUGS (1)
  1. CLARAVIS [Suspect]
     Indication: ACNE
     Dates: start: 20110520, end: 20111020

REACTIONS (10)
  - PSEUDOMONAS INFECTION [None]
  - ARTHROPATHY [None]
  - LIMB INJURY [None]
  - PARONYCHIA [None]
  - DRUG INEFFECTIVE [None]
  - STAPHYLOCOCCAL INFECTION [None]
  - SKIN DISCOLOURATION [None]
  - HAEMORRHAGE [None]
  - LOCALISED INFECTION [None]
  - PYOGENIC GRANULOMA [None]
